FAERS Safety Report 10411683 (Version 1)
Quarter: 2014Q3

REPORT INFORMATION
  Report Type: Report from Study
  Country: ZA (occurrence: ZA)
  Receive Date: 20140827
  Receipt Date: 20140827
  Transmission Date: 20150326
  Serious: Yes (Hospitalization, Other)
  Sender: FDA-Public Use
  Company Number: ZA-BAYER-2014-086989

PATIENT
  Age: 54 Year
  Sex: Female

DRUGS (2)
  1. BETAFERON [Suspect]
     Active Substance: INTERFERON BETA-1B
     Dosage: UNK
     Dates: end: 200706
  2. BETAFERON [Suspect]
     Active Substance: INTERFERON BETA-1B

REACTIONS (16)
  - Injection site cellulitis [None]
  - Drug resistance [None]
  - Injection site pain [Recovered/Resolved]
  - Influenza like illness [None]
  - Influenza [None]
  - Emotional disorder [None]
  - Maternal exposure during pregnancy [None]
  - Tearfulness [None]
  - Multiple sclerosis relapse [None]
  - Cellulitis [None]
  - Pain of skin [None]
  - Injection site inflammation [Recovered/Resolved]
  - Nephrolithiasis [None]
  - Fatigue [None]
  - Injection site reaction [Recovering/Resolving]
  - Skin induration [None]

NARRATIVE: CASE EVENT DATE: 2000
